FAERS Safety Report 17634738 (Version 2)
Quarter: 2020Q2

REPORT INFORMATION
  Report Type: Spontaneous
  Country: FR (occurrence: FR)
  Receive Date: 20200406
  Receipt Date: 20200428
  Transmission Date: 20200713
  Serious: Yes (Other)
  Sender: FDA-Public Use
  Company Number: FR-009507513-2004FRA000625

PATIENT
  Age: 59 Year
  Sex: Male

DRUGS (4)
  1. NIVOLUMAB [Suspect]
     Active Substance: NIVOLUMAB
     Indication: LUNG NEOPLASM MALIGNANT
  2. PEMBROLIZUMAB. [Suspect]
     Active Substance: PEMBROLIZUMAB
     Indication: LUNG NEOPLASM MALIGNANT
     Dosage: 2 MILLIGRAM/KILOGRAM, SINGLE INJECTION
  3. NIVOLUMAB [Suspect]
     Active Substance: NIVOLUMAB
     Indication: BRONCHIAL NEOPLASM
     Dosage: 3 MILLIGRAM/KILOGRAM, QD
  4. PEMBROLIZUMAB. [Suspect]
     Active Substance: PEMBROLIZUMAB
     Indication: BRONCHIAL NEOPLASM

REACTIONS (2)
  - Renal tubular acidosis [Recovered/Resolved]
  - Tubulointerstitial nephritis [Recovered/Resolved]
